FAERS Safety Report 16565590 (Version 1)
Quarter: 2019Q3

REPORT INFORMATION
  Report Type: Spontaneous
  Country: US (occurrence: US)
  Receive Date: 20190712
  Receipt Date: 20190712
  Transmission Date: 20191004
  Serious: No
  Sender: FDA-Public Use
  Company Number: US-TEVA-2019-US-1073185

PATIENT
  Sex: Female

DRUGS (2)
  1. MINOCYCLINE HCL [Suspect]
     Active Substance: MINOCYCLINE HYDROCHLORIDE
     Indication: LYME DISEASE
     Dates: start: 20190608, end: 20190608
  2. MINOCYCLINE HCL [Suspect]
     Active Substance: MINOCYCLINE HYDROCHLORIDE
     Indication: MYCOPLASMA INFECTION

REACTIONS (2)
  - Rash [Recovering/Resolving]
  - Dyshidrotic eczema [Recovering/Resolving]

NARRATIVE: CASE EVENT DATE: 20190608
